FAERS Safety Report 18320426 (Version 1)
Quarter: 2020Q3

REPORT INFORMATION
  Report Type: Other
  Country: CA (occurrence: CA)
  Receive Date: 20200929
  Receipt Date: 20200929
  Transmission Date: 20201103
  Serious: Yes (Other)
  Sender: FDA-Public Use
  Company Number: CA-CELLTRION INC.-2020CA026219

PATIENT

DRUGS (17)
  1. RITUXIMAB (UNKNOWN) [Suspect]
     Active Substance: RITUXIMAB
     Indication: RHEUMATOID ARTHRITIS
     Dosage: 1000 MG, 1 EVERY 15 DAYS
     Route: 042
  2. BICALUTAMIDE. [Concomitant]
     Active Substance: BICALUTAMIDE
  3. ROSUVASTATIN. [Concomitant]
     Active Substance: ROSUVASTATIN
  4. BENADRYL [Concomitant]
     Active Substance: DIPHENHYDRAMINE HYDROCHLORIDE
     Indication: PREMEDICATION
     Dosage: 50 MG
     Route: 048
  5. POLYSACCHARIDE?IRON COMPLEX [Concomitant]
     Active Substance: FERRIC POLYSACCHARIDE COMPLEX
  6. POTASSIUM CHLORIDE. [Concomitant]
     Active Substance: POTASSIUM CHLORIDE
  7. CLOPIDOGREL BISULFATE. [Concomitant]
     Active Substance: CLOPIDOGREL BISULFATE
  8. FLUOROURACIL. [Concomitant]
     Active Substance: FLUOROURACIL
  9. GOSERELIN [Concomitant]
     Active Substance: GOSERELIN
  10. NITROGLYCERIN. [Concomitant]
     Active Substance: NITROGLYCERIN
  11. HYDROXYCHLOROQUINE [Concomitant]
     Active Substance: HYDROXYCHLOROQUINE
  12. TYLENOL [Concomitant]
     Active Substance: ACETAMINOPHEN
     Indication: PREMEDICATION
     Dosage: 660 MG
     Route: 048
  13. BISOPROLOL [Concomitant]
     Active Substance: BISOPROLOL
  14. SULFASALAZINE. [Concomitant]
     Active Substance: SULFASALAZINE
  15. FUROSEMIDE SODIUM [Concomitant]
     Active Substance: FUROSEMIDE SODIUM
     Dosage: 60 MG, 1 EVERY 1 DAYS
     Route: 065
  16. KETOPROFEN. [Concomitant]
     Active Substance: KETOPROFEN
  17. RABEPRAZOLE SODIUM. [Concomitant]
     Active Substance: RABEPRAZOLE SODIUM

REACTIONS (4)
  - Fall [Unknown]
  - Moaning [Unknown]
  - Product use issue [Unknown]
  - Bone contusion [Unknown]
